FAERS Safety Report 14035784 (Version 1)
Quarter: 2017Q4

REPORT INFORMATION
  Report Type: Spontaneous
  Country: US (occurrence: US)
  Receive Date: 20171003
  Receipt Date: 20171003
  Transmission Date: 20180321
  Serious: Yes (Other)
  Sender: FDA-Public Use
  Company Number: US-AMGEN-USASP2017016381

PATIENT
  Age: 66 Year
  Sex: Female

DRUGS (16)
  1. B6 [Concomitant]
     Active Substance: PYRIDOXINE HYDROCHLORIDE
  2. ZOFRAN [Concomitant]
     Active Substance: ONDANSETRON HYDROCHLORIDE
  3. XGEVA [Suspect]
     Active Substance: DENOSUMAB
     Indication: PRODUCT USED FOR UNKNOWN INDICATION
     Route: 065
  4. CLARITIN [Concomitant]
     Active Substance: LORATADINE
  5. XANAX [Concomitant]
     Active Substance: ALPRAZOLAM
  6. NATURAL [Concomitant]
  7. POTASSIUM CHLORIDE. [Concomitant]
     Active Substance: POTASSIUM CHLORIDE
  8. ANASTROZOLE. [Concomitant]
     Active Substance: ANASTROZOLE
  9. CORICIDIN HBP COLD AND FLU [Concomitant]
     Active Substance: ACETAMINOPHEN\CHLORPHENIRAMINE MALEATE
  10. IBRANCE [Suspect]
     Active Substance: PALBOCICLIB
     Indication: BREAST CANCER FEMALE
     Dosage: 125 MG, Q3WK
     Route: 065
     Dates: start: 20161223
  11. ARIMIDEX [Concomitant]
     Active Substance: ANASTROZOLE
  12. NYSTATIN. [Concomitant]
     Active Substance: NYSTATIN
  13. DEXAMETHASONE. [Concomitant]
     Active Substance: DEXAMETHASONE
  14. CIPRO [Concomitant]
     Active Substance: CIPROFLOXACIN HYDROCHLORIDE
  15. LASIX [Concomitant]
     Active Substance: FUROSEMIDE
  16. CALCIUM 500+D [Concomitant]
     Active Substance: CALCIUM\VITAMIN D

REACTIONS (1)
  - Tooth abscess [Unknown]
